FAERS Safety Report 7523963-4 (Version None)
Quarter: 2011Q2

REPORT INFORMATION
  Report Type: 
  Country: None (occurrence: None)
  Receive Date: 20110603
  Receipt Date: 20110523
  Transmission Date: 20111010
  Serious: Yes (Other)
  Sender: FDA-Public Use
  Company Number: US-AMGEN-USASP2011026707

PATIENT
  Sex: Male

DRUGS (2)
  1. EPOGEN [Suspect]
     Indication: RENAL FAILURE CHRONIC
     Dosage: 28000 IU, 3 TIMES/WK
  2. EPOGEN [Suspect]

REACTIONS (4)
  - LOWER LIMB FRACTURE [None]
  - THERAPEUTIC RESPONSE DECREASED [None]
  - HAEMOGLOBIN DECREASED [None]
  - FALL [None]
